FAERS Safety Report 16859928 (Version 1)
Quarter: 2019Q4

REPORT INFORMATION
  Report Type: Spontaneous
  Country: US (occurrence: US)
  Receive Date: 20190927
  Receipt Date: 20190927
  Transmission Date: 20200122
  Serious: Yes (Disabling)
  Sender: FDA-Public Use
  Company Number: None

PATIENT
  Age: 24 Year
  Sex: Female
  Weight: 60.3 kg

DRUGS (5)
  1. DIPHENHYDRAMINE HCL [Concomitant]
     Active Substance: DIPHENHYDRAMINE HYDROCHLORIDE
  2. OXCARBAZEPINE. [Suspect]
     Active Substance: OXCARBAZEPINE
     Indication: EPILEPSY
     Dosage: ?          QUANTITY:3 TABLET(S);?
     Route: 048
  3. CELEXA [Suspect]
     Active Substance: CITALOPRAM HYDROBROMIDE
  4. LAMICTAL [Concomitant]
     Active Substance: LAMOTRIGINE
  5. EFFEXOR ER (VENLAFAXINE HCL ER) [Concomitant]

REACTIONS (12)
  - Lethargy [None]
  - Amnesia [None]
  - Suicidal ideation [None]
  - Sensory processing disorder [None]
  - Hypersomnia [None]
  - Dizziness [None]
  - Tremor [None]
  - Back pain [None]
  - Dental caries [None]
  - Disturbance in attention [None]
  - Hyponatraemia [None]
  - Therapy cessation [None]
